FAERS Safety Report 6232428-1 (Version None)
Quarter: 2009Q2

REPORT INFORMATION
  Report Type: 
  Country: None (occurrence: None)
  Receive Date: 20090615
  Receipt Date: 20090615
  Transmission Date: 20091009
  Serious: No
  Sender: FDA-Public Use
  Company Number: None

PATIENT
  Sex: Female
  Weight: 86.1834 kg

DRUGS (1)
  1. PERPHENAZINE [Suspect]
     Indication: MENTAL DISORDER
     Dosage: 16MG X 2 8 MG X 1 DAILY, ESTIMATE 3-08-6-09
     Dates: start: 20090308

REACTIONS (12)
  - ANXIETY [None]
  - DRY MOUTH [None]
  - EYELID OEDEMA [None]
  - FATIGUE [None]
  - INCONTINENCE [None]
  - LACRIMATION INCREASED [None]
  - MENSTRUATION IRREGULAR [None]
  - MENTAL STATUS CHANGES [None]
  - MOOD ALTERED [None]
  - NERVOUSNESS [None]
  - RHINORRHOEA [None]
  - TARDIVE DYSKINESIA [None]
